FAERS Safety Report 10195603 (Version 1)
Quarter: 2014Q2

REPORT INFORMATION
  Report Type: Report from Study
  Country: FR (occurrence: FR)
  Receive Date: 20140527
  Receipt Date: 20140527
  Transmission Date: 20141212
  Serious: Yes (Hospitalization)
  Sender: FDA-Public Use
  Company Number: FR-ROCHE-1406347

PATIENT
  Sex: Female

DRUGS (6)
  1. RITUXIMAB [Suspect]
     Indication: RHEUMATOID ARTHRITIS
     Route: 041
     Dates: start: 20080107
  2. RITUXIMAB [Suspect]
     Route: 041
     Dates: start: 20080124
  3. TOCILIZUMAB [Suspect]
     Indication: RHEUMATOID ARTHRITIS
     Route: 042
     Dates: start: 20110224
  4. METHOTREXATE [Concomitant]
     Dosage: 10 MG/WEEK
     Route: 065
     Dates: start: 20080107
  5. CORTANCYL [Concomitant]
     Route: 065
     Dates: start: 20080107
  6. METHYLPREDNISOLONE [Concomitant]
     Route: 065
     Dates: start: 20080107

REACTIONS (13)
  - Pleural effusion [Recovered/Resolved]
  - Anaemia [Not Recovered/Not Resolved]
  - Pleural effusion [Recovered/Resolved]
  - Cardiac failure [Recovered/Resolved]
  - Renal failure acute [Recovered/Resolved]
  - Infusion related reaction [Recovered/Resolved]
  - Bronchitis [Not Recovered/Not Resolved]
  - Hepatic fibrosis [Not Recovered/Not Resolved]
  - Oedema peripheral [Not Recovered/Not Resolved]
  - Gastritis [Unknown]
  - Anaemia [Not Recovered/Not Resolved]
  - Fracture [Unknown]
  - Neck pain [Not Recovered/Not Resolved]
